FAERS Safety Report 23531104 (Version 1)
Quarter: 2024Q1

REPORT INFORMATION
  Report Type: Spontaneous
  Country: US (occurrence: US)
  Receive Date: 20240216
  Receipt Date: 20240216
  Transmission Date: 20240410
  Serious: Yes (Life-Threatening, Hospitalization, Other)
  Sender: FDA-Public Use
  Company Number: US-SUN PHARMACEUTICAL INDUSTRIES LTD-2024R1-431197

PATIENT
  Age: 6 Decade
  Sex: Male

DRUGS (3)
  1. DONEPEZIL [Suspect]
     Active Substance: DONEPEZIL
     Indication: Dementia Alzheimer^s type
     Route: 065
  2. QUETIAPINE [Concomitant]
     Active Substance: QUETIAPINE
     Indication: Dementia Alzheimer^s type
     Route: 065
  3. MEMANTINE [Concomitant]
     Active Substance: MEMANTINE
     Indication: Dementia Alzheimer^s type
     Route: 065

REACTIONS (6)
  - Bundle branch block [Recovering/Resolving]
  - Bradycardia [Recovering/Resolving]
  - Atrioventricular block first degree [Recovering/Resolving]
  - Generalised tonic-clonic seizure [Recovering/Resolving]
  - Syncope [Recovering/Resolving]
  - Epilepsy [Recovering/Resolving]
